FAERS Safety Report 11069693 (Version 2)
Quarter: 2015Q3

REPORT INFORMATION
  Report Type: Spontaneous
  Country: US (occurrence: US)
  Receive Date: 20150427
  Receipt Date: 20150729
  Transmission Date: 20151125
  Serious: Yes (Life-Threatening, Hospitalization, Other)
  Sender: FDA-Public Use
  Company Number: US-ELI_LILLY_AND_COMPANY-US201504005091

PATIENT
  Sex: Female
  Weight: 91 kg

DRUGS (10)
  1. VISTARIL [Suspect]
     Active Substance: HYDROXYZINE PAMOATE
     Indication: SLEEP DISORDER
     Dosage: 100 MG, EACH EVENING
     Route: 065
  2. PROZAC [Suspect]
     Active Substance: FLUOXETINE HYDROCHLORIDE
     Indication: ANTIDEPRESSANT THERAPY
     Route: 065
  3. NEURONTIN [Concomitant]
     Active Substance: GABAPENTIN
  4. TRAVATAN [Concomitant]
     Active Substance: TRAVOPROST
  5. SEROQUEL [Suspect]
     Active Substance: QUETIAPINE FUMARATE
     Indication: PRODUCT USED FOR UNKNOWN INDICATION
     Dosage: 240 UNK, UNK
     Route: 065
     Dates: start: 2005
  6. RISPERDAL [Suspect]
     Active Substance: RISPERIDONE
     Indication: PRODUCT USED FOR UNKNOWN INDICATION
     Dosage: UNK
     Route: 065
     Dates: start: 1981
  7. GEODON [Suspect]
     Active Substance: ZIPRASIDONE HYDROCHLORIDE\ZIPRASIDONE MESYLATE
     Indication: SCHIZOPHRENIA, PARANOID TYPE
     Dosage: 240 MG, UNK
     Route: 065
     Dates: start: 2000
  8. DIAZEPAM. [Suspect]
     Active Substance: DIAZEPAM
     Indication: ANXIETY
     Dosage: 4 MG, TID
     Route: 065
  9. VISTARIL [Suspect]
     Active Substance: HYDROXYZINE PAMOATE
     Indication: ANXIETY
  10. EFFEXOR [Concomitant]
     Active Substance: VENLAFAXINE HYDROCHLORIDE

REACTIONS (17)
  - Hallucination [Unknown]
  - Abasia [Unknown]
  - Seizure [Recovered/Resolved]
  - Fall [Unknown]
  - Eye contusion [Unknown]
  - Contusion [Unknown]
  - Muscle disorder [Recovered/Resolved]
  - Insomnia [Unknown]
  - Empyema [Recovered/Resolved]
  - Weight increased [Unknown]
  - Lip swelling [Unknown]
  - Tooth injury [Unknown]
  - Dysgraphia [Unknown]
  - Somnolence [Unknown]
  - Micturition urgency [Unknown]
  - Increased appetite [Unknown]
  - Blood glucose abnormal [Unknown]

NARRATIVE: CASE EVENT DATE: 2000
